FAERS Safety Report 19380150 (Version 1)
Quarter: 2021Q2

REPORT INFORMATION
  Report Type: Spontaneous
  Country: ES (occurrence: ES)
  Receive Date: 20210607
  Receipt Date: 20210607
  Transmission Date: 20210717
  Serious: Yes (Hospitalization, Other)
  Sender: FDA-Public Use
  Company Number: ES-AUROBINDO-AUR-APL-2019-101947

PATIENT
  Age: 65 Year
  Sex: Female

DRUGS (4)
  1. LEVOFLOXACIN. [Suspect]
     Active Substance: LEVOFLOXACIN
     Indication: RESPIRATORY TRACT INFECTION
     Route: 048
  2. SULFAMETHOXAZOLE;TRIMETHOPRIM [Suspect]
     Active Substance: SULFAMETHOXAZOLE\TRIMETHOPRIM
     Indication: URINARY TRACT INFECTION
     Dosage: UNK
     Route: 065
  3. SERTRALINE [Suspect]
     Active Substance: SERTRALINE HYDROCHLORIDE
     Indication: AFFECTIVE DISORDER
     Dosage: UNK
     Route: 065
  4. DOXYCYCLINE. [Suspect]
     Active Substance: DOXYCYCLINE
     Indication: RESPIRATORY TRACT INFECTION
     Dosage: UNK
     Route: 048

REACTIONS (3)
  - Hepatitis toxic [Recovered/Resolved]
  - Hepatic cytolysis [Recovered/Resolved]
  - Cholestasis [Recovered/Resolved]
